FAERS Safety Report 21496920 (Version 1)
Quarter: 2022Q4

REPORT INFORMATION
  Report Type: Spontaneous
  Country: US (occurrence: US)
  Receive Date: 20221022
  Receipt Date: 20221022
  Transmission Date: 20230113
  Serious: Yes (Other)
  Sender: FDA-Public Use
  Company Number: US-NOVARTISPH-NVSC2022US233727

PATIENT
  Age: 62 Year
  Sex: Female

DRUGS (4)
  1. METHOTREXATE [Suspect]
     Active Substance: METHOTREXATE
     Indication: Transitional cell carcinoma
     Dosage: UNK, CYCLIC (2 CYCLES)
     Route: 065
     Dates: start: 201904
  2. VINBLASTINE [Suspect]
     Active Substance: VINBLASTINE
     Indication: Transitional cell carcinoma
     Dosage: UNK, CYCLIC (2 CYCLES)
     Route: 065
     Dates: start: 201904
  3. DOXORUBICIN [Suspect]
     Active Substance: DOXORUBICIN
     Indication: Transitional cell carcinoma
     Dosage: UNK, CYCLIC (2 CYCLES)
     Route: 065
     Dates: start: 201904
  4. CISPLATIN [Suspect]
     Active Substance: CISPLATIN
     Indication: Transitional cell carcinoma
     Dosage: UNK, CYCLIC (2 CYCLES)
     Route: 065
     Dates: start: 201904

REACTIONS (3)
  - Pseudomonal bacteraemia [Unknown]
  - Liver function test abnormal [Unknown]
  - Product use in unapproved indication [Unknown]
